FAERS Safety Report 5062501-5 (Version None)
Quarter: 2006Q3

REPORT INFORMATION
  Report Type: 
  Country: None (occurrence: None)
  Receive Date: 20060703
  Receipt Date: 20051122
  Transmission Date: 20061208
  Serious: No
  Sender: FDA-Public Use
  Company Number: 2005S1011448

PATIENT
  Age: 43 Year
  Sex: Female

DRUGS (8)
  1. CLOZAPINE [Suspect]
     Indication: PSYCHOTIC DISORDER
     Dosage: QD;PO
     Route: 048
     Dates: start: 20030101, end: 20051118
  2. TIOTIXENE [Concomitant]
  3. BENZTROPINE MESYLATE [Concomitant]
  4. FLUOXETINE HYDROCHLORIDE [Concomitant]
  5. ESOMEPRAZOLE MAGNESIUM [Concomitant]
  6. LORAZEPAM [Concomitant]
  7. VITAMINS NOS [Concomitant]
  8. KETOCONAZOLE [Concomitant]

REACTIONS (1)
  - GRANULOCYTOPENIA [None]
